FAERS Safety Report 5920387-8 (Version None)
Quarter: 2008Q4

REPORT INFORMATION
  Report Type: 
  Country: None (occurrence: None)
  Receive Date: 20081016
  Receipt Date: 20081009
  Transmission Date: 20090506
  Serious: Yes (Other)
  Sender: FDA-Public Use
  Company Number: PHHY2008BR17021

PATIENT
  Sex: Female
  Weight: 67 kg

DRUGS (7)
  1. DIOVAN HCT [Suspect]
     Indication: HYPERTENSION
     Dosage: 160/25 MG (1 TABLET A DAY)
  2. SYNTHROID [Concomitant]
     Indication: THYROID DISORDER
     Dosage: 125 MG, QD
     Route: 048
  3. DEPAKOTE [Concomitant]
     Indication: BRAIN HYPOXIA
     Dosage: 250 MG, BID
     Route: 048
  4. RIVOTRIL [Concomitant]
     Indication: NERVOUS SYSTEM DISORDER
     Dosage: 25 MG, BID
     Route: 048
  5. SERTRALINE [Concomitant]
     Indication: DEPRESSION
     Dosage: 50 MG, QD
     Route: 048
  6. MIFLONIDE [Concomitant]
     Indication: DYSPNOEA
     Dosage: 400 MG, PRN
  7. CALCIUM CHANNEL BLOCKERS [Concomitant]

REACTIONS (5)
  - BUNION [None]
  - BUNION OPERATION [None]
  - HEARING IMPAIRED [None]
  - INFECTED BUNION [None]
  - PAIN [None]
